FAERS Safety Report 9993733 (Version 1)
Quarter: 2014Q1

REPORT INFORMATION
  Report Type: Spontaneous
  Country: DK (occurrence: DK)
  Receive Date: 20140310
  Receipt Date: 20140310
  Transmission Date: 20141002
  Serious: Yes (Other)
  Sender: FDA-Public Use
  Company Number: CHPA2014DK003675

PATIENT
  Sex: Female

DRUGS (1)
  1. SCOPODERM TTS [Suspect]
     Indication: MOTION SICKNESS
     Dosage: ACCORDING TO LABELLING
     Route: 062
     Dates: start: 201007

REACTIONS (2)
  - Blindness [Recovered/Resolved]
  - Visual impairment [Recovered/Resolved]
